FAERS Safety Report 19588165 (Version 1)
Quarter: 2021Q3

REPORT INFORMATION
  Report Type: Spontaneous
  Country: US (occurrence: US)
  Receive Date: 20210721
  Receipt Date: 20210721
  Transmission Date: 20211014
  Serious: Yes (Hospitalization)
  Sender: FDA-Public Use
  Company Number: None

PATIENT
  Age: 80 Year
  Sex: Female
  Weight: 64.8 kg

DRUGS (22)
  1. FUROSEMIDE 40MG [Concomitant]
     Active Substance: FUROSEMIDE
  2. APIXABAN 5MG [Concomitant]
     Active Substance: APIXABAN
  3. METOCLOPRAMIDE 5MG [Concomitant]
     Active Substance: METOCLOPRAMIDE
  4. LEVOTHYROXINE 75MCG [Concomitant]
     Active Substance: LEVOTHYROXINE
  5. METOPROLOL SUCCINATE ER 25MG [Concomitant]
  6. VITAMIN D3 125MCG [Concomitant]
  7. FEXOFENADINE 180MG [Concomitant]
     Active Substance: FEXOFENADINE HYDROCHLORIDE
  8. DULERA [Concomitant]
     Active Substance: FORMOTEROL FUMARATE DIHYDRATE\MOMETASONE FUROATE
  9. INLYTA [Suspect]
     Active Substance: AXITINIB
     Indication: RENAL CANCER
     Route: 048
     Dates: start: 20200710
  10. ROPINIROLE 1MG [Concomitant]
     Active Substance: ROPINIROLE
  11. PANTOPRAZOLE 40MG [Concomitant]
     Active Substance: PANTOPRAZOLE SODIUM
  12. VENTOLIN HFA [Concomitant]
     Active Substance: ALBUTEROL SULFATE
  13. ASPIRIN 81MG [Concomitant]
     Active Substance: ASPIRIN
  14. MAGNESIUM 250MG [Concomitant]
  15. ACETAMINOPHEN 500MG [Concomitant]
     Active Substance: ACETAMINOPHEN
  16. HYDROCORTISONE 10MG [Concomitant]
  17. NITROGLYCERIN 0.4MG [Concomitant]
  18. VITAMIN B12 ER 1000MCG [Concomitant]
  19. PROCHLORPERAZINE 5MG [Concomitant]
  20. ONDANSETRON 4MG [Concomitant]
     Active Substance: ONDANSETRON
  21. PERCOCET 5MG [Concomitant]
  22. POTASSIUM 10MEQ [Concomitant]

REACTIONS (1)
  - Hospitalisation [None]

NARRATIVE: CASE EVENT DATE: 20210720
